FAERS Safety Report 6448945-5 (Version None)
Quarter: 2009Q4

REPORT INFORMATION
  Report Type: 
  Country: None (occurrence: None)
  Receive Date: 20091120
  Receipt Date: 20091117
  Transmission Date: 20100525
  Serious: Yes (Hospitalization, Congenital Anomaly, Other)
  Sender: FDA-Public Use
  Company Number: A0817469A

PATIENT

DRUGS (2)
  1. PAXIL [Suspect]
     Indication: DRUG USE FOR UNKNOWN INDICATION
  2. THYROID MEDICATION [Concomitant]

REACTIONS (2)
  - CONGENITAL HEART VALVE DISORDER [None]
  - DRUG EXPOSURE DURING PREGNANCY [None]
